APPROVED DRUG PRODUCT: CORVERT
Active Ingredient: IBUTILIDE FUMARATE
Strength: 0.1MG/ML
Dosage Form/Route: INJECTABLE;INJECTION
Application: N020491 | Product #001 | TE Code: AP
Applicant: PFIZER INC
Approved: Dec 28, 1995 | RLD: Yes | RS: Yes | Type: RX